FAERS Safety Report 5039156-9 (Version None)
Quarter: 2006Q2

REPORT INFORMATION
  Report Type: 
  Country: None (occurrence: None)
  Receive Date: 20060629
  Receipt Date: 20060622
  Transmission Date: 20061013
  Serious: Yes (Other)
  Sender: FDA-Public Use
  Company Number: IE-GLAXOSMITHKLINE-B0429064A

PATIENT
  Weight: 1.9 kg

DRUGS (4)
  1. MALARONE [Suspect]
     Indication: DRUG USE FOR UNKNOWN INDICATION
  2. MULTI-VITAMIN [Concomitant]
     Indication: DRUG USE FOR UNKNOWN INDICATION
  3. ZINC [Concomitant]
     Indication: DRUG USE FOR UNKNOWN INDICATION
  4. OMEGA OIL [Concomitant]
     Indication: DRUG USE FOR UNKNOWN INDICATION

REACTIONS (3)
  - DRUG EXPOSURE DURING PREGNANCY [None]
  - SMALL FOR DATES BABY [None]
  - TRISOMY 21 [None]
